FAERS Safety Report 6910698-1 (Version None)
Quarter: 2010Q3

REPORT INFORMATION
  Report Type: 
  Country: None (occurrence: None)
  Receive Date: 20100806
  Receipt Date: 20100726
  Transmission Date: 20110219
  Serious: Yes (Hospitalization, Other)
  Sender: FDA-Public Use
  Company Number: JP-PFIZER INC-2010081142

PATIENT
  Age: 30 Year
  Sex: Female
  Weight: 49.887 kg

DRUGS (7)
  1. ZOLOFT [Suspect]
     Dosage: 25 MG, 1X/DAY
     Route: 048
     Dates: start: 20100510, end: 20100606
  2. DEPAKENE [Concomitant]
     Indication: AFFECT LABILITY
     Dosage: 200 MG, 2X/DAY
     Route: 048
     Dates: start: 20090531
  3. PAXIL [Concomitant]
     Dosage: 10 MG/DAY
     Route: 048
  4. NORTRIPTYLINE HCL [Concomitant]
     Indication: DEPRESSION
     Dosage: 30 MG, (10MG/20MG) 2X/DAY
     Route: 048
     Dates: start: 20080331, end: 20081109
  5. NORTRIPTYLINE HCL [Concomitant]
     Dosage: 20 MG, 3X/DAY
     Route: 048
     Dates: start: 20081110, end: 20091023
  6. NORTRIPTYLINE HCL [Concomitant]
     Dosage: 25 MG, 3X/DAY
     Route: 048
     Dates: start: 20091024, end: 20100530
  7. NORTRIPTYLINE HCL [Concomitant]
     Dosage: 20MG/30MG
     Route: 048
     Dates: start: 20100331

REACTIONS (3)
  - CONTUSION [None]
  - EPILEPSY [None]
  - TREMOR [None]
